FAERS Safety Report 18066992 (Version 3)
Quarter: 2020Q3

REPORT INFORMATION
  Report Type: Spontaneous
  Country: US (occurrence: US)
  Receive Date: 20200724
  Receipt Date: 20200927
  Transmission Date: 20201103
  Serious: No
  Sender: FDA-Public Use
  Company Number: US-ASTRAZENECA-2020SE90364

PATIENT
  Sex: Female
  Weight: 104.8 kg

DRUGS (1)
  1. BYDUREON BCISE [Suspect]
     Active Substance: EXENATIDE
     Indication: TYPE 2 DIABETES MELLITUS
     Route: 065
     Dates: start: 20200714, end: 20200819

REACTIONS (7)
  - Injection site urticaria [Recovering/Resolving]
  - Injection site haemorrhage [Recovered/Resolved]
  - Incorrect dose administered by device [Not Recovered/Not Resolved]
  - Device leakage [Unknown]
  - Device issue [Unknown]
  - Injection site pain [Unknown]
  - Injection site nodule [Recovered/Resolved]
